FAERS Safety Report 8488133-4 (Version None)
Quarter: 2012Q3

REPORT INFORMATION
  Report Type: 
  Country: None (occurrence: None)
  Receive Date: 20120705
  Receipt Date: 20120702
  Transmission Date: 20120928
  Serious: Yes (Hospitalization)
  Sender: FDA-Public Use
  Company Number: PHHO2010FR03955

PATIENT
  Sex: Male
  Weight: 75 kg

DRUGS (2)
  1. PLACEBO [Suspect]
     Indication: PANCREATIC NEUROENDOCRINE TUMOUR
     Dosage: PLACEBO
     Route: 048
     Dates: start: 20081001, end: 20090217
  2. RAD001 [Suspect]
     Indication: CHEMOTHERAPY MULTIPLE AGENTS SYSTEMIC
     Dosage: 10 MG, UNK
     Route: 048
     Dates: start: 20090325

REACTIONS (1)
  - PYREXIA [None]
